FAERS Safety Report 15733173 (Version 1)
Quarter: 2018Q4

REPORT INFORMATION
  Report Type: Spontaneous
  Country: US (occurrence: US)
  Receive Date: 20181218
  Receipt Date: 20181218
  Transmission Date: 20190205
  Serious: No
  Sender: FDA-Public Use
  Company Number: US-TEVA-2018-US-984128

PATIENT
  Sex: Female

DRUGS (2)
  1. PRAZOSIN HYDROCHLORIDE CAPSULES TEVA [Suspect]
     Active Substance: PRAZOSIN HYDROCHLORIDE
     Indication: ANXIETY
  2. PRAZOSIN HYDROCHLORIDE CAPSULES TEVA [Suspect]
     Active Substance: PRAZOSIN HYDROCHLORIDE
     Indication: POST-TRAUMATIC STRESS DISORDER
     Route: 065
     Dates: start: 2005

REACTIONS (1)
  - Drug ineffective [Unknown]
